FAERS Safety Report 10251971 (Version 1)
Quarter: 2014Q2

REPORT INFORMATION
  Report Type: Report from Study
  Country: US (occurrence: US)
  Receive Date: 20140623
  Receipt Date: 20140623
  Transmission Date: 20141212
  Serious: Yes (Other)
  Sender: FDA-Public Use
  Company Number: US-JNJFOC-20140607305

PATIENT
  Age: 57 Year
  Sex: Female

DRUGS (2)
  1. INVOKANA [Suspect]
     Indication: DIABETES MELLITUS
     Route: 048
     Dates: start: 20140528, end: 20140610
  2. HUMALOG [Concomitant]
     Indication: DIABETES MELLITUS
     Dosage: (STARTED A LONG TIME AGO)

REACTIONS (6)
  - Rash vesicular [Not Recovered/Not Resolved]
  - Pruritus [Not Recovered/Not Resolved]
  - Inappropriate schedule of drug administration [Recovered/Resolved]
  - Rash macular [Not Recovered/Not Resolved]
  - Rash erythematous [Not Recovered/Not Resolved]
  - Rash [Not Recovered/Not Resolved]
